FAERS Safety Report 17885166 (Version 1)
Quarter: 2020Q2

REPORT INFORMATION
  Report Type: Spontaneous
  Country: US (occurrence: US)
  Receive Date: 20200611
  Receipt Date: 20200611
  Transmission Date: 20200714
  Serious: Yes (Life-Threatening, Hospitalization)
  Sender: FDA-Public Use
  Company Number: None

PATIENT
  Age: 44 Year
  Sex: Female

DRUGS (1)
  1. GABAPENTIN 300MG AND 100MG [Suspect]
     Active Substance: GABAPENTIN
     Indication: NERVOUS SYSTEM DISORDER
     Dates: start: 20200121, end: 20200424

REACTIONS (21)
  - Muscle twitching [None]
  - Hot flush [None]
  - Anxiety [None]
  - Ear discomfort [None]
  - Gastrooesophageal reflux disease [None]
  - Palpitations [None]
  - Dyspnoea [None]
  - Vasodilatation [None]
  - Vitreous floaters [None]
  - Insomnia [None]
  - Rash [None]
  - Hyperhidrosis [None]
  - Tinnitus [None]
  - Peripheral swelling [None]
  - Myalgia [None]
  - Muscle spasms [None]
  - Skin burning sensation [None]
  - Amnesia [None]
  - Hypoaesthesia [None]
  - Asthenia [None]
  - Lymphadenopathy [None]

NARRATIVE: CASE EVENT DATE: 20200121
